FAERS Safety Report 10868158 (Version 1)
Quarter: 2015Q1

REPORT INFORMATION
  Report Type: Report from Study
  Country: AT (occurrence: AT)
  Receive Date: 20150225
  Receipt Date: 20150225
  Transmission Date: 20150721
  Serious: Yes (Death, Other)
  Sender: FDA-Public Use
  Company Number: AT-CELGENE-009-21880-11051599

PATIENT

DRUGS (3)
  1. DEXAMETHASONE. [Concomitant]
     Active Substance: DEXAMETHASONE
     Route: 065
  2. REVLIMID [Suspect]
     Active Substance: LENALIDOMIDE
     Indication: PLASMA CELL MYELOMA
     Route: 048
  3. DEXAMETHASONE. [Concomitant]
     Active Substance: DEXAMETHASONE
     Indication: PLASMA CELL MYELOMA
     Route: 065

REACTIONS (31)
  - Respiratory failure [Fatal]
  - Sepsis [Fatal]
  - Peripheral sensory neuropathy [Unknown]
  - Sudden death [Fatal]
  - Infection [Fatal]
  - Cardiac arrest [Fatal]
  - Plasma cell myeloma [Fatal]
  - Bronchopneumonia [Fatal]
  - Anaemia [Unknown]
  - Thrombocytopenia [Unknown]
  - Pulmonary embolism [Unknown]
  - Neutropenia [Unknown]
  - Constipation [Unknown]
  - Hypokalaemia [Unknown]
  - Macular oedema [Unknown]
  - No therapeutic response [Unknown]
  - Embolism [Unknown]
  - Leukopenia [Unknown]
  - Fatigue [Unknown]
  - Oral candidiasis [Unknown]
  - Vomiting [Unknown]
  - Cardiotoxicity [Fatal]
  - Cerebrovascular accident [Fatal]
  - Nausea [Unknown]
  - Cerebrovascular accident [Unknown]
  - Rash [Unknown]
  - Hyperglycaemia [Unknown]
  - Diarrhoea [Unknown]
  - Cardiac disorder [Fatal]
  - Myocardial infarction [Unknown]
  - Hypocalcaemia [Unknown]
